FAERS Safety Report 4300371-0 (Version None)
Quarter: 2004Q1

REPORT INFORMATION
  Report Type: 
  Country: None (occurrence: None)
  Receive Date: 20040220
  Receipt Date: 20031008
  Transmission Date: 20041129
  Serious: Yes (Other)
  Sender: FDA-Public Use
  Company Number: FR-GLAXOSMITHKLINE-B0311282A

PATIENT
  Age: 16 Year
  Sex: Male

DRUGS (1)
  1. DEROXAT [Suspect]
     Indication: DEPRESSION
     Route: 048
     Dates: start: 20030908, end: 20030916

REACTIONS (4)
  - RETINAL DEGENERATION [None]
  - RETINAL DISORDER [None]
  - SCOTOMA [None]
  - VISUAL ACUITY REDUCED [None]
